FAERS Safety Report 15833189 (Version 1)
Quarter: 2018Q4

REPORT INFORMATION
  Report Type: Spontaneous
  Country: US (occurrence: US)
  Receive Date: 20181220
  Receipt Date: 20181220
  Transmission Date: 20190205
  Serious: Yes (Other)
  Sender: FDA-Public Use
  Company Number: None

PATIENT
  Age: 80 Year
  Sex: Female
  Weight: 92.99 kg

DRUGS (35)
  1. ASPIRIN. [Concomitant]
     Active Substance: ASPIRIN
  2. DICLOFENAC TOPICAL 1% GEL [Concomitant]
  3. HUMIRA [Concomitant]
     Active Substance: ADALIMUMAB
  4. MOMETASON (NASONEX) [Concomitant]
  5. PANLOPRAZOLE SOD DR. [Concomitant]
  6. PRAMIPESOLE [Concomitant]
  7. CALCIUM AND VITAMIN D COMBINATION [Concomitant]
  8. CLARITIN [Concomitant]
     Active Substance: LORATADINE
  9. CYCLOBENZAPRINE. [Concomitant]
     Active Substance: CYCLOBENZAPRINE
  10. OXYBUTYNIN CL. ER [Concomitant]
  11. VITAMIN C [Concomitant]
     Active Substance: ASCORBIC ACID
  12. LOPERAMIDE [Concomitant]
     Active Substance: LOPERAMIDE
  13. NAPROXEN NA [Concomitant]
     Active Substance: NAPROXEN SODIUM
  14. VENLAFAXINE [Concomitant]
     Active Substance: VENLAFAXINE HYDROCHLORIDE
  15. LOSARTAN. [Suspect]
     Active Substance: LOSARTAN
  16. CITALOPRAM [Concomitant]
     Active Substance: CITALOPRAM HYDROBROMIDE
  17. COLESTIPOL MICRONIZED [Concomitant]
  18. DIGOXIN. [Concomitant]
     Active Substance: DIGOXIN
  19. VITAMIN D3 [Concomitant]
     Active Substance: CHOLECALCIFEROL
  20. AMLODIPINE [Suspect]
     Active Substance: AMLODIPINE BESYLATE
  21. FLUTICASONE/SALMETEROL [Concomitant]
     Active Substance: FLUTICASONE PROPIONATE\SALMETEROL XINAFOATE
  22. FUROSIMIDE [Concomitant]
     Active Substance: FUROSEMIDE
  23. KLOR-CON [Concomitant]
     Active Substance: POTASSIUM CHLORIDE
  24. SUPER B VITAMIN COMPLEX [Concomitant]
  25. BIFIDOBACTERIUM-LACTOBACILLUS [Concomitant]
  26. CLOBETASOL [Concomitant]
     Active Substance: CLOBETASOL
  27. VITAFUSION COMPLETE MULTIVITAMIN [Concomitant]
  28. ALBUTEROL. [Concomitant]
     Active Substance: ALBUTEROL
  29. GABAPENTIN. [Concomitant]
     Active Substance: GABAPENTIN
  30. IRON [Concomitant]
     Active Substance: IRON
  31. LEVETIRACETGAM (KEPPRA) [Concomitant]
  32. HYDROMORPHONE (DILAUDID) [Concomitant]
  33. LEVOTHYROXINE. [Concomitant]
     Active Substance: LEVOTHYROXINE
  34. LOSARTIN POTASSIUM [Concomitant]
  35. VITAMIN B-12 OTC [Concomitant]

REACTIONS (1)
  - Product dispensing error [None]

NARRATIVE: CASE EVENT DATE: 20181218
